FAERS Safety Report 13939411 (Version 1)
Quarter: 2017Q3

REPORT INFORMATION
  Report Type: Spontaneous
  Country: FR (occurrence: FR)
  Receive Date: 20170906
  Receipt Date: 20170906
  Transmission Date: 20171127
  Serious: Yes (Hospitalization)
  Sender: FDA-Public Use
  Company Number: FR-ACCORD-058267

PATIENT
  Age: 69 Year
  Sex: Female

DRUGS (3)
  1. DOCETAXEL HOSPIRA [Suspect]
     Active Substance: DOCETAXEL
     Indication: SQUAMOUS CELL CARCINOMA OF THE ORAL CAVITY
     Dosage: STRENGTH: 10 MG/ML?120MG IN ONE SINGLE INTAKE ON DAY 01
     Route: 042
     Dates: start: 20160622, end: 20160622
  2. FLUOROURACIL ACCORD [Suspect]
     Active Substance: FLUOROURACIL
     Indication: SQUAMOUS CELL CARCINOMA OF THE ORAL CAVITY
     Dosage: STRENGTH: 50 MG/ML?1200 MG ONCE DAILY ON DAY 01 TO DAY 05
     Route: 042
     Dates: start: 20160622, end: 20160626
  3. CISPLATIN ACCORD [Suspect]
     Active Substance: CISPLATIN
     Indication: SQUAMOUS CELL CARCINOMA OF THE ORAL CAVITY
     Dosage: STRENGTH: 1 MG/ML?120 MG IN ONE SINGLE INTAKE ON DAY 01
     Route: 042
     Dates: start: 20160622, end: 20160622

REACTIONS (3)
  - Neutropenic colitis [Recovered/Resolved]
  - Diarrhoea [Recovered/Resolved]
  - Bone marrow failure [Recovered/Resolved]

NARRATIVE: CASE EVENT DATE: 20160624
